FAERS Safety Report 13311881 (Version 1)
Quarter: 2017Q1

REPORT INFORMATION
  Report Type: Spontaneous
  Country: US (occurrence: US)
  Receive Date: 20170309
  Receipt Date: 20170309
  Transmission Date: 20170428
  Serious: No
  Sender: FDA-Public Use
  Company Number: US-SHIRE-US201704979

PATIENT
  Sex: Male

DRUGS (2)
  1. LIALDA [Suspect]
     Active Substance: MESALAMINE
     Dosage: 4.8 G, UNKNOWN (A DAY)
     Route: 048
  2. LIALDA [Suspect]
     Active Substance: MESALAMINE
     Indication: PRODUCT USED FOR UNKNOWN INDICATION
     Dosage: 1.2 G, UNKNOWN
     Route: 048

REACTIONS (2)
  - Condition aggravated [Unknown]
  - Abdominal distension [Unknown]

NARRATIVE: CASE EVENT DATE: 20170228
